FAERS Safety Report 7889710-1 (Version None)
Quarter: 2011Q4

REPORT INFORMATION
  Report Type: 
  Country: None (occurrence: None)
  Receive Date: 20111103
  Receipt Date: 20111003
  Transmission Date: 20120403
  Serious: No
  Sender: FDA-Public Use
  Company Number: US-BAYER-2011-095518

PATIENT
  Age: 80 Year
  Sex: Female
  Weight: 59 kg

DRUGS (1)
  1. ASPIRIN [Suspect]
     Indication: ISCHAEMIC HEART DISEASE PROPHYLAXIS
     Dosage: BOTTLE COUNT 120S
     Route: 048
     Dates: end: 20111001

REACTIONS (3)
  - CHEST PAIN [None]
  - FAECES DISCOLOURED [None]
  - DIZZINESS [None]
